FAERS Safety Report 8426461-9 (Version None)
Quarter: 2012Q2

REPORT INFORMATION
  Report Type: 
  Country: None (occurrence: None)
  Receive Date: 20120611
  Receipt Date: 20120608
  Transmission Date: 20120825
  Serious: Yes (Death)
  Sender: FDA-Public Use
  Company Number: MA-ABBOTT-12P-110-0943496-00

PATIENT
  Age: 32 Year
  Sex: Male

DRUGS (6)
  1. ANTIBIOTIC [Concomitant]
     Indication: PRODUCT USED FOR UNKNOWN INDICATION
  2. HUMIRA [Suspect]
     Dosage: WEEK 2
     Route: 058
  3. SYNTHROID [Concomitant]
     Indication: PRODUCT USED FOR UNKNOWN INDICATION
  4. HUMIRA [Suspect]
     Indication: CROHN'S DISEASE
     Dosage: WEEK 0
     Route: 058
     Dates: start: 20120201
  5. HUMIRA [Suspect]
     Dosage: WEEK 4
     Route: 058
     Dates: end: 20120301
  6. FLAGYL [Concomitant]
     Indication: INFECTION

REACTIONS (4)
  - ANAEMIA [None]
  - MALABSORPTION [None]
  - INTESTINAL HAEMORRHAGE [None]
  - THROMBOCYTOPENIA [None]
